FAERS Safety Report 12325563 (Version 1)
Quarter: 2016Q2

REPORT INFORMATION
  Report Type: Spontaneous
  Country: BR (occurrence: BR)
  Receive Date: 20160503
  Receipt Date: 20160503
  Transmission Date: 20160815
  Serious: Yes (Other)
  Sender: FDA-Public Use
  Company Number: PHHY2016BR059888

PATIENT
  Sex: Female

DRUGS (1)
  1. GILENYA [Suspect]
     Active Substance: FINGOLIMOD HYDROCHLORIDE
     Indication: PRODUCT USED FOR UNKNOWN INDICATION
     Route: 065

REACTIONS (6)
  - Sensory disturbance [Recovered/Resolved]
  - Uterine leiomyoma [Unknown]
  - Malaise [Unknown]
  - Haemorrhage [Unknown]
  - Skin injury [Unknown]
  - Multiple sclerosis [Unknown]
